FAERS Safety Report 17553008 (Version 1)
Quarter: 2020Q1

REPORT INFORMATION
  Report Type: Report from Study
  Country: US (occurrence: US)
  Receive Date: 20200317
  Receipt Date: 20200317
  Transmission Date: 20200409
  Serious: Yes (Hospitalization)
  Sender: FDA-Public Use
  Company Number: US-EXELIXIS-CABO-20028128

PATIENT
  Sex: Female

DRUGS (8)
  1. VICTOZA [Concomitant]
     Active Substance: LIRAGLUTIDE
  2. NEXAVAR [Concomitant]
     Active Substance: SORAFENIB
  3. CABOMETYX [Suspect]
     Active Substance: CABOZANTINIB S-MALATE
     Dosage: 60 MG, QD
     Route: 048
  4. GLUMETZA [Concomitant]
     Active Substance: METFORMIN HYDROCHLORIDE
  5. TIZANIDINE. [Concomitant]
     Active Substance: TIZANIDINE
  6. ELLURA [Concomitant]
     Active Substance: DIETARY SUPPLEMENT
  7. METHENAMINE HIPPURATE. [Concomitant]
     Active Substance: METHENAMINE HIPPURATE
  8. CABOMETYX [Suspect]
     Active Substance: CABOZANTINIB S-MALATE
     Indication: RENAL CANCER
     Dosage: 60 MG, QD
     Route: 048
     Dates: start: 20190201

REACTIONS (5)
  - Oral disorder [Unknown]
  - Diarrhoea [Unknown]
  - Muscle spasms [Unknown]
  - Blister [Unknown]
  - Nausea [Unknown]
